FAERS Safety Report 26091722 (Version 1)
Quarter: 2025Q4

REPORT INFORMATION
  Report Type: Spontaneous
  Country: US (occurrence: US)
  Receive Date: 20251126
  Receipt Date: 20251126
  Transmission Date: 20260117
  Serious: No
  Sender: TAKEDA
  Company Number: US-TAKEDA-2025TUS107049

PATIENT
  Sex: Female

DRUGS (2)
  1. CEPROTIN [Suspect]
     Active Substance: PROTEIN C
     Indication: Meningococcal bacteraemia
     Dosage: UNK
  2. CEPROTIN [Suspect]
     Active Substance: PROTEIN C
     Indication: Purpura fulminans

REACTIONS (1)
  - Off label use [Unknown]
